FAERS Safety Report 11654476 (Version 1)
Quarter: 2015Q4

REPORT INFORMATION
  Report Type: Spontaneous
  Country: US (occurrence: US)
  Receive Date: 20151023
  Receipt Date: 20151023
  Transmission Date: 20160304
  Serious: No
  Sender: FDA-Public Use
  Company Number: US-009507513-1410USA006002

PATIENT
  Age: 64 Year
  Sex: Male

DRUGS (10)
  1. OMEGA-3 MARINE TRIGLYCERIDES [Concomitant]
     Active Substance: FISH OIL
     Dosage: UNK
  2. BCG VACCINE USP [Suspect]
     Active Substance: BCG VACCINE
     Dosage: 25 MG, QW, WEEK 4
     Route: 043
     Dates: start: 2014
  3. TICE BCG [Suspect]
     Active Substance: BACILLUS CALMETTE-GUERIN SUBSTRAIN TICE LIVE ANTIGEN
     Dosage: UNK
  4. BCG VACCINE USP [Suspect]
     Active Substance: BCG VACCINE
     Dosage: 50 MG, QW, WEEK 1, 2 AND 3
     Route: 043
     Dates: start: 20140808
  5. VICODIN [Concomitant]
     Active Substance: ACETAMINOPHEN\HYDROCODONE BITARTRATE
     Dosage: AS NEEDED
  6. BCG VACCINE USP [Suspect]
     Active Substance: BCG VACCINE
     Dosage: 12.5 MG, QW, WEEK 5 AND 6
     Route: 043
     Dates: start: 2014
  7. FLONASE [Concomitant]
     Active Substance: FLUTICASONE PROPIONATE
     Dosage: UNK
  8. ZOCOR [Concomitant]
     Active Substance: SIMVASTATIN
     Dosage: UNK
     Route: 048
  9. ASCORBIC ACID. [Concomitant]
     Active Substance: ASCORBIC ACID
     Dosage: UNK
  10. TYLENOL [Concomitant]
     Active Substance: ACETAMINOPHEN
     Dosage: UNK

REACTIONS (6)
  - Incorrect dose administered [Unknown]
  - Adverse event [Unknown]
  - Drug intolerance [Unknown]
  - Incorrect route of drug administration [Unknown]
  - Product name confusion [Unknown]
  - Wrong drug administered [Unknown]

NARRATIVE: CASE EVENT DATE: 2014
